FAERS Safety Report 6053317-1 (Version None)
Quarter: 2009Q1

REPORT INFORMATION
  Report Type: 
  Country: None (occurrence: None)
  Receive Date: 20090127
  Receipt Date: 20090126
  Transmission Date: 20090719
  Serious: Yes (Death)
  Sender: FDA-Public Use
  Company Number: A0765152A

PATIENT
  Age: 68 Year
  Sex: Female

DRUGS (2)
  1. FLOLAN [Suspect]
     Indication: PULMONARY ARTERIAL HYPERTENSION
     Dosage: 3MG PER DAY
     Route: 042
     Dates: start: 20080704, end: 20090123
  2. FLOLAN [Suspect]
     Indication: PULMONARY ARTERIAL HYPERTENSION
     Dosage: 100ML PER DAY
     Route: 042
     Dates: start: 20080704, end: 20090123

REACTIONS (2)
  - DEATH [None]
  - PULMONARY ARTERIAL HYPERTENSION [None]
